FAERS Safety Report 9838452 (Version 2)
Quarter: 2014Q1

REPORT INFORMATION
  Report Type: Spontaneous
  Country: US (occurrence: US)
  Receive Date: 20140123
  Receipt Date: 20140123
  Transmission Date: 20141002
  Serious: Yes (Death)
  Sender: FDA-Public Use
  Company Number: US-ASTELLAS-2011000892

PATIENT
  Sex: Male

DRUGS (3)
  1. TARCEVA [Suspect]
     Indication: LUNG NEOPLASM MALIGNANT
     Dosage: 150 MG, UID/QD
     Route: 048
     Dates: end: 20110120
  2. TARCEVA [Suspect]
     Indication: NEOPLASM MALIGNANT
  3. TARCEVA [Suspect]
     Indication: TRACHEAL CANCER

REACTIONS (1)
  - Pneumonia [Fatal]
